FAERS Safety Report 6975457-2 (Version None)
Quarter: 2010Q3

REPORT INFORMATION
  Report Type: 
  Country: None (occurrence: None)
  Receive Date: 20100910
  Receipt Date: 20100902
  Transmission Date: 20110219
  Serious: Yes (Other)
  Sender: FDA-Public Use
  Company Number: SE-BRISTOL-MYERS SQUIBB COMPANY-15258890

PATIENT
  Age: 49 Year
  Sex: Male

DRUGS (6)
  1. ABILIFY [Suspect]
     Dates: start: 20090801
  2. SOBRIL [Interacting]
  3. ATARAX [Concomitant]
  4. PRIMPERAN TAB [Concomitant]
  5. FLUCONAZOLE [Concomitant]
     Dosage: FLUCONAZOL ACTAVIS
  6. ALIMEMAZINE [Concomitant]

REACTIONS (3)
  - ANXIETY [None]
  - MENTAL DISORDER [None]
  - THERAPEUTIC RESPONSE UNEXPECTED [None]
